FAERS Safety Report 11945211 (Version 2)
Quarter: 2016Q3

REPORT INFORMATION
  Report Type: Report from Study
  Country: IN (occurrence: IN)
  Receive Date: 20160125
  Receipt Date: 20160921
  Transmission Date: 20161109
  Serious: Yes (Hospitalization)
  Sender: FDA-Public Use
  Company Number: IN-B.I. PHARMACEUTICALS,INC./RIDGEFIELD-2015-BI-63100BI

PATIENT
  Age: 79 Year
  Sex: Male
  Weight: 42 kg

DRUGS (6)
  1. ISOSORBIDE MONONITRATE. [Concomitant]
     Active Substance: ISOSORBIDE MONONITRATE
     Indication: HYPERTENSION
     Dosage: 20 MG
     Route: 048
     Dates: start: 1990, end: 20151110
  2. RAMIPRIL. [Concomitant]
     Active Substance: RAMIPRIL
     Indication: HYPERTENSION
     Dosage: 2.5 MG
     Route: 048
     Dates: start: 20150228, end: 20151110
  3. PANTOCID [Concomitant]
     Indication: ANTACID THERAPY
     Dosage: 40 MG
     Route: 048
     Dates: start: 20150228, end: 20151110
  4. DABIGATRAN [Suspect]
     Active Substance: DABIGATRAN
     Indication: ISCHAEMIC STROKE
     Route: 048
     Dates: start: 20151102, end: 20151110
  5. ATORVASTATIN [Concomitant]
     Active Substance: ATORVASTATIN
     Indication: BLOOD CHOLESTEROL ABNORMAL
     Dosage: 20 MG
     Route: 048
     Dates: start: 20150228, end: 20151110
  6. PROLOMET [Concomitant]
     Indication: HYPERTENSION
     Dosage: 25 MG
     Route: 048
     Dates: start: 1990, end: 20151110

REACTIONS (3)
  - Haematuria [Recovered/Resolved]
  - Metabolic encephalopathy [Recovered/Resolved]
  - Urinary tract infection [Recovered/Resolved]

NARRATIVE: CASE EVENT DATE: 20151110
